FAERS Safety Report 11513546 (Version 1)
Quarter: 2015Q3

REPORT INFORMATION
  Report Type: Spontaneous
  Country: US (occurrence: US)
  Receive Date: 20150903
  Receipt Date: 20150903
  Transmission Date: 20151125
  Serious: No
  Sender: FDA-Public Use
  Company Number: US-ELI_LILLY_AND_COMPANY-US201210007853

PATIENT
  Sex: Female

DRUGS (2)
  1. CYMBALTA [Suspect]
     Active Substance: DULOXETINE HYDROCHLORIDE
     Indication: DEPRESSION
     Dosage: 30 MG, BID
     Dates: start: 2009, end: 201210
  2. EFFEXOR [Concomitant]
     Active Substance: VENLAFAXINE HYDROCHLORIDE

REACTIONS (12)
  - Tinnitus [Unknown]
  - Feeling abnormal [Unknown]
  - Paraesthesia [Unknown]
  - Off label use [Unknown]
  - Irritability [Unknown]
  - Ear infection [Unknown]
  - Agitation [Unknown]
  - Fatigue [Unknown]
  - Drug effect decreased [Unknown]
  - Drug withdrawal syndrome [Unknown]
  - Somnolence [Unknown]
  - Headache [Unknown]
